FAERS Safety Report 7090314-1 (Version None)
Quarter: 2010Q4

REPORT INFORMATION
  Report Type: 
  Country: None (occurrence: None)
  Receive Date: 20101109
  Receipt Date: 20101027
  Transmission Date: 20110411
  Serious: Yes (Other)
  Sender: FDA-Public Use
  Company Number: DE-JNJFOC-20101006688

PATIENT
  Sex: Female
  Weight: 174 kg

DRUGS (5)
  1. PALEXIA RETARD [Suspect]
     Indication: ILL-DEFINED DISORDER
     Route: 048
  2. TRIAMPUR COMPOSITUM [Concomitant]
     Route: 065
  3. BISOPROLOL [Concomitant]
     Route: 065
  4. OMEP [Concomitant]
     Route: 065
  5. IBUPROFEN [Concomitant]
     Route: 065

REACTIONS (5)
  - ABDOMINAL DISCOMFORT [None]
  - BLADDER PAIN [None]
  - FLANK PAIN [None]
  - INFREQUENT BOWEL MOVEMENTS [None]
  - URINARY RETENTION [None]
